FAERS Safety Report 4971992-7 (Version None)
Quarter: 2006Q2

REPORT INFORMATION
  Report Type: 
  Country: None (occurrence: None)
  Receive Date: 20060407
  Receipt Date: 20060328
  Transmission Date: 20061013
  Serious: Yes (Other)
  Sender: FDA-Public Use
  Company Number: 2006042898

PATIENT
  Age: 70 Year
  Sex: Male
  Weight: 81.6475 kg

DRUGS (9)
  1. LIPITOR [Suspect]
     Indication: ILL-DEFINED DISORDER
     Dosage: 10 MG (10 MG, 1 IN 1 D) ORAL
     Route: 048
  2. TAMSULOSIN HCL [Concomitant]
  3. VITAMINS [Concomitant]
  4. SAW PALMETTO [Concomitant]
  5. TOPROL-XL [Concomitant]
  6. NORVASC [Concomitant]
  7. VALSARTAN [Concomitant]
  8. ECOTRIN (ACETYLSALICYLIC ACID) [Concomitant]
  9. FLAXSEED OIL (LINSEED OIL) [Concomitant]

REACTIONS (3)
  - CONDITION AGGRAVATED [None]
  - DYSPEPSIA [None]
  - STENT PLACEMENT [None]
